FAERS Safety Report 10245599 (Version 1)
Quarter: 2014Q2

REPORT INFORMATION
  Report Type: Spontaneous
  Country: US (occurrence: US)
  Receive Date: 20140619
  Receipt Date: 20140619
  Transmission Date: 20141212
  Serious: Yes (Other)
  Sender: FDA-Public Use
  Company Number: US-AMGEN-USASP2014044852

PATIENT
  Age: 53 Year
  Sex: Female

DRUGS (1)
  1. ENBREL [Suspect]
     Indication: PSORIATIC ARTHROPATHY
     Dosage: 50 MG, QWK
     Route: 065
     Dates: start: 201106, end: 201312

REACTIONS (4)
  - Squamous cell carcinoma [Recovered/Resolved]
  - Peripheral swelling [Not Recovered/Not Resolved]
  - Impaired healing [Recovered/Resolved]
  - Skin ulcer [Recovered/Resolved]
